FAERS Safety Report 14258530 (Version 2)
Quarter: 2020Q3

REPORT INFORMATION
  Report Type: Spontaneous
  Country: US (occurrence: US)
  Receive Date: 20171207
  Receipt Date: 20200716
  Transmission Date: 20201102
  Serious: No
  Sender: FDA-Public Use
  Company Number: US-PFIZER INC-2017522435

PATIENT
  Age: 72 Year
  Sex: Male

DRUGS (1)
  1. PROCARDIA XL [Suspect]
     Active Substance: NIFEDIPINE
     Indication: BLOOD PRESSURE ABNORMAL
     Dosage: 60 MG, 1X/DAY
     Dates: start: 2007

REACTIONS (3)
  - Back pain [Unknown]
  - Muscle spasms [Unknown]
  - Pain [Unknown]
